FAERS Safety Report 6571426-5 (Version None)
Quarter: 2010Q1

REPORT INFORMATION
  Report Type: 
  Country: None (occurrence: None)
  Receive Date: 20100205
  Receipt Date: 20100125
  Transmission Date: 20100710
  Serious: Yes (Other)
  Sender: FDA-Public Use
  Company Number: JP-PFIZER INC-2010011406

PATIENT
  Age: 35 Year
  Sex: Female

DRUGS (1)
  1. VIBRAMYCIN [Suspect]
     Indication: ACNE
     Route: 048
     Dates: start: 20091201

REACTIONS (2)
  - ARTHRALGIA [None]
  - BLISTER [None]
